FAERS Safety Report 16254848 (Version 3)
Quarter: 2022Q1

REPORT INFORMATION
  Report Type: Report from Study
  Country: DE (occurrence: None)
  Receive Date: 20190430
  Receipt Date: 20220110
  Transmission Date: 20220423
  Serious: Yes (Death, Hospitalization)
  Sender: FDA-Public Use
  Company Number: DE-ROCHE-2308470

PATIENT
  Age: 68 Year
  Sex: Male
  Weight: 603 kg

DRUGS (7)
  1. RITUXIMAB [Suspect]
     Active Substance: RITUXIMAB
     Indication: Chronic lymphocytic leukaemia
     Dosage: DATE OF MOST RECENT DOSE OF RITUXIMAB PRIOR TO ONSET OF SAE: 11/APR/2019 (905 MG)
     Route: 041
     Dates: start: 20190214
  2. BENDAMUSTINE [Suspect]
     Active Substance: BENDAMUSTINE
     Indication: Chronic lymphocytic leukaemia
     Dosage: DATE OF MOST RECENT DOSE OF BENDAMUSTIN PRIOR TO ONSET OF SAE: 12/APR/2019 (162.90 MG)
     Route: 042
     Dates: start: 20190214
  3. ELIQUIS [Concomitant]
     Active Substance: APIXABAN
     Route: 048
  4. ACYCLOVIR [Concomitant]
     Active Substance: ACYCLOVIR
     Route: 048
  5. ACYCLOVIR [Concomitant]
     Active Substance: ACYCLOVIR
     Route: 048
  6. PREDNISONE [Concomitant]
     Active Substance: PREDNISONE
     Route: 048
  7. DUTASTERIDE;TAMSULOSIN HYDROCHLORIDE [Concomitant]
     Dosage: DAILY DOSE 0.5/0.4 MG

REACTIONS (2)
  - Cerebrovascular accident [Recovered/Resolved]
  - Cerebrovascular accident [Fatal]

NARRATIVE: CASE EVENT DATE: 20190420
